FAERS Safety Report 5324955-6 (Version None)
Quarter: 2007Q2

REPORT INFORMATION
  Report Type: 
  Country: None (occurrence: None)
  Receive Date: 20070510
  Receipt Date: 20070510
  Transmission Date: 20071010
  Serious: Yes (Death, Hospitalization)
  Sender: FDA-Public Use
  Company Number: None

PATIENT
  Sex: Female
  Weight: 76 kg

DRUGS (1)
  1. TEMOZOLOMIDE [Suspect]
     Dosage: 5940 MG

REACTIONS (3)
  - DISEASE PROGRESSION [None]
  - DIZZINESS [None]
  - INCOHERENT [None]
